FAERS Safety Report 12541270 (Version 2)
Quarter: 2016Q4

REPORT INFORMATION
  Report Type: Spontaneous
  Country: GB (occurrence: GB)
  Receive Date: 20160708
  Receipt Date: 20161206
  Transmission Date: 20170207
  Serious: Yes (Hospitalization)
  Sender: FDA-Public Use
  Company Number: GB-JNJFOC-20160701383

PATIENT
  Age: 77 Year
  Sex: Male
  Weight: 78 kg

DRUGS (3)
  1. IBRUTINIB [Suspect]
     Active Substance: IBRUTINIB
     Indication: B-CELL SMALL LYMPHOCYTIC LYMPHOMA
     Route: 048
  2. VITAMIN D [Concomitant]
     Active Substance: CHOLECALCIFEROL
     Dates: end: 201601
  3. IBRUTINIB [Suspect]
     Active Substance: IBRUTINIB
     Indication: B-CELL SMALL LYMPHOCYTIC LYMPHOMA
     Dosage: DOSAGE WAS GIVEN AS 420
     Route: 048
     Dates: start: 201409, end: 20160617

REACTIONS (3)
  - Hypercalcaemia [Recovered/Resolved]
  - Renal impairment [Recovered/Resolved]
  - Empyema [Recovered/Resolved]

NARRATIVE: CASE EVENT DATE: 20160225
